FAERS Safety Report 25984316 (Version 1)
Quarter: 2025Q4

REPORT INFORMATION
  Report Type: Spontaneous
  Country: JP (occurrence: JP)
  Receive Date: 20251031
  Receipt Date: 20251031
  Transmission Date: 20260118
  Serious: Yes (Other)
  Sender: AMGEN
  Company Number: JP-AMGEN-JPNSP2025213655

PATIENT

DRUGS (8)
  1. BEVACIZUMAB [Suspect]
     Active Substance: BEVACIZUMAB
     Indication: Non-small cell lung cancer
     Dosage: UNK
     Route: 065
  2. BEVACIZUMAB [Suspect]
     Active Substance: BEVACIZUMAB
     Indication: Metastases to bone
  3. ATEZOLIZUMAB [Concomitant]
     Active Substance: ATEZOLIZUMAB
     Indication: Non-small cell lung cancer
     Dosage: UNK
  4. ATEZOLIZUMAB [Concomitant]
     Active Substance: ATEZOLIZUMAB
     Indication: Metastases to bone
  5. CARBOPLATIN [Concomitant]
     Active Substance: CARBOPLATIN
     Indication: Non-small cell lung cancer
  6. CARBOPLATIN [Concomitant]
     Active Substance: CARBOPLATIN
     Indication: Metastases to bone
  7. PACLITAXEL [Concomitant]
     Active Substance: PACLITAXEL
     Indication: Non-small cell lung cancer
  8. PACLITAXEL [Concomitant]
     Active Substance: PACLITAXEL
     Indication: Metastases to bone

REACTIONS (3)
  - Non-small cell lung cancer metastatic [Unknown]
  - Spinal disorder [Unknown]
  - Therapy partial responder [Unknown]
